FAERS Safety Report 4964910-9 (Version None)
Quarter: 2006Q1

REPORT INFORMATION
  Report Type: 
  Country: None (occurrence: None)
  Receive Date: 20060207
  Receipt Date: 20050523
  Transmission Date: 20060701
  Serious: Yes (Hospitalization)
  Sender: FDA-Public Use
  Company Number: 241664

PATIENT
  Age: 69 Year
  Sex: Female

DRUGS (2)
  1. NOVOLOG [Suspect]
     Indication: DIABETES MELLITUS INSULIN-DEPENDENT
     Dosage: SUBCUTAN.-PUMP
     Route: 058
     Dates: start: 20010101, end: 20050111
  2. INSULIN PUMP NOS [Concomitant]

REACTIONS (1)
  - BLOOD GLUCOSE INCREASED [None]
